FAERS Safety Report 9467684 (Version 5)
Quarter: 2015Q2

REPORT INFORMATION
  Report Type: Spontaneous
  Country: US (occurrence: US)
  Receive Date: 20130821
  Receipt Date: 20150505
  Transmission Date: 20150821
  Serious: Yes (Other)
  Sender: FDA-Public Use
  Company Number: US-BAYER-2013-100301

PATIENT
  Age: 21 Year
  Sex: Female
  Weight: 70.3 kg

DRUGS (2)
  1. MIRENA [Suspect]
     Active Substance: LEVONORGESTREL
     Indication: CONTRACEPTION
     Dosage: 20 MCG/24HR, CONT
     Route: 015
     Dates: start: 20071004, end: 20080318
  2. MIRENA [Suspect]
     Active Substance: LEVONORGESTREL
     Indication: CONTRACEPTION
     Dosage: 20 MCG/24HR, CONT
     Dates: start: 20100810, end: 20130221

REACTIONS (8)
  - Injury [None]
  - Abdominal pain lower [None]
  - Pain [None]
  - Abdominal pain [None]
  - Uterine perforation [None]
  - Cyst [None]
  - Device issue [None]
  - Infection [None]

NARRATIVE: CASE EVENT DATE: 200711
